FAERS Safety Report 5201660-8 (Version None)
Quarter: 2006Q4

REPORT INFORMATION
  Report Type: 
  Country: None (occurrence: None)
  Receive Date: 20061010
  Receipt Date: 20060509
  Transmission Date: 20070319
  Serious: No
  Sender: FDA-Public Use
  Company Number: 06P-163-0332871-00

PATIENT
  Age: 48 Year
  Sex: Male
  Weight: 95.2554 kg

DRUGS (3)
  1. TRICOR [Suspect]
     Indication: HYPERTRIGLYCERIDAEMIA
     Dosage: 54 MG, 1 IN 1 D, PER ORAL
     Route: 048
     Dates: start: 20010101, end: 20010801
  2. LANSOPRAZOLE [Concomitant]
  3. FEXOFENADINE HYDROCHLORIDE [Concomitant]

REACTIONS (3)
  - BLOOD TRIGLYCERIDES INCREASED [None]
  - CHOLELITHIASIS [None]
  - WEIGHT DECREASED [None]
